FAERS Safety Report 12210940 (Version 10)
Quarter: 2019Q2

REPORT INFORMATION
  Report Type: Report from Study
  Country: BR (occurrence: BR)
  Receive Date: 20160325
  Receipt Date: 20190409
  Transmission Date: 20190711
  Serious: Yes (Life-Threatening, Hospitalization, Other)
  Sender: FDA-Public Use
  Company Number: PHHY2016BR038967

PATIENT
  Age: 26 Year
  Sex: Male
  Weight: 50 kg

DRUGS (6)
  1. EXJADE [Suspect]
     Active Substance: DEFERASIROX
     Dosage: 1500 MG, QD
     Route: 048
     Dates: start: 2016
  2. HYDREA [Concomitant]
     Active Substance: HYDROXYUREA
     Indication: SICKLE CELL ANAEMIA
     Dosage: 3 DF, QD (AT NIGHT)
     Route: 048
     Dates: start: 2002
  3. EXJADE [Suspect]
     Active Substance: DEFERASIROX
     Dosage: 500 MG 3 TABLETS AND 250 MG 1 TABLET
     Route: 048
     Dates: start: 201605
  4. EXJADE [Suspect]
     Active Substance: DEFERASIROX
     Indication: SICKLE CELL ANAEMIA
     Dosage: 20 MG/KG, QD
     Route: 048
     Dates: start: 2001
  5. EXJADE [Suspect]
     Active Substance: DEFERASIROX
     Dosage: 3 DF, IN THE MORNING
     Route: 048
     Dates: start: 2002
  6. FOLIC ACID. [Concomitant]
     Active Substance: FOLIC ACID
     Indication: PRODUCT USED FOR UNKNOWN INDICATION
     Dosage: 3 DF, QD (AT NIGHT)
     Route: 048
     Dates: start: 2002

REACTIONS (22)
  - Chest pain [Unknown]
  - Headache [Unknown]
  - Pain in extremity [Unknown]
  - Pyrexia [Recovered/Resolved]
  - Vertigo [Unknown]
  - Diarrhoea [Recovered/Resolved]
  - Paternal exposure during pregnancy [Unknown]
  - Hypoaesthesia oral [Unknown]
  - Feeding disorder [Unknown]
  - Weight decreased [Unknown]
  - Thrombosis [Not Recovered/Not Resolved]
  - Pneumonia [Recovering/Resolving]
  - Nausea [Unknown]
  - Cerebrovascular accident [Recovering/Resolving]
  - Hepatic siderosis [Unknown]
  - Pulmonary embolism [Recovered/Resolved]
  - Decreased appetite [Recovered/Resolved]
  - Infection [Unknown]
  - Malaise [Unknown]
  - Feeling abnormal [Unknown]
  - Weight gain poor [Unknown]
  - Abdominal pain [Unknown]

NARRATIVE: CASE EVENT DATE: 20171118
